FAERS Safety Report 5004974-X (Version None)
Quarter: 2006Q2

REPORT INFORMATION
  Report Type: 
  Country: None (occurrence: None)
  Receive Date: 20060517
  Receipt Date: 20060517
  Transmission Date: 20061013
  Serious: Yes (Life-Threatening)
  Sender: FDA-Public Use
  Company Number: GB-BOEHRINGER INGELHEIM PHARMACEUTICALS, INC.-2006-UK-02518UK

PATIENT
  Age: 76 Year
  Sex: Female
  Weight: 72 kg

DRUGS (10)
  1. PRAMIPEXOLE DIHYDROCHLORIDE [Suspect]
     Indication: PARKINSON'S DISEASE
     Route: 048
     Dates: start: 20060314, end: 20060422
  2. RABEPRAZOLE SODIUM [Concomitant]
     Route: 048
  3. MOTIVAL [Concomitant]
     Dosage: 3 ONCE NIGHTLY.
     Route: 048
  4. DOXAZOSIN [Concomitant]
     Route: 048
  5. ADIZEM [Concomitant]
     Route: 048
  6. RAMIPRIL [Concomitant]
     Route: 065
  7. ATORVASTATIN CALCIUM [Concomitant]
     Route: 065
  8. BENDROFLUMETHIAZIDE [Concomitant]
     Route: 065
  9. MADOPAR [Concomitant]
     Dosage: 1 AS REQUIRED.
     Route: 065
  10. CO-DYDRAMOL [Concomitant]
     Dosage: 2 FOUR TIMES DAILY, AS REQUIRED.
     Route: 065

REACTIONS (1)
  - ATRIAL FIBRILLATION [None]
